FAERS Safety Report 7866526-3 (Version None)
Quarter: 2011Q4

REPORT INFORMATION
  Report Type: 
  Country: None (occurrence: None)
  Receive Date: 20111028
  Receipt Date: 20110628
  Transmission Date: 20120403
  Serious: No
  Sender: FDA-Public Use
  Company Number: US-GLAXOSMITHKLINE-A0933461A

PATIENT
  Age: 74 Year
  Sex: Male

DRUGS (7)
  1. DIGOXIN [Concomitant]
  2. SIMVASTATIN [Concomitant]
  3. ZIAC [Concomitant]
  4. ADVAIR DISKUS 100/50 [Suspect]
     Indication: LUNG DISORDER
     Dosage: 1PUFF TWICE PER DAY
     Route: 055
     Dates: start: 20080601, end: 20080601
  5. VERAPAMIL [Concomitant]
  6. TEMISARTAN [Concomitant]
  7. WARFARIN SODIUM [Concomitant]

REACTIONS (2)
  - DIZZINESS [None]
  - VISION BLURRED [None]
